FAERS Safety Report 22393020 (Version 1)
Quarter: 2023Q2

REPORT INFORMATION
  Report Type: Report from Study
  Country: US (occurrence: None)
  Receive Date: 20230601
  Receipt Date: 20230601
  Transmission Date: 20230721
  Serious: Yes (Hospitalization)
  Sender: FDA-Public Use
  Company Number: US-ROCHE-3347715

PATIENT
  Age: 52 Year
  Sex: Female
  Weight: 102.3 kg

DRUGS (27)
  1. ISCALIMAB [Suspect]
     Active Substance: ISCALIMAB
     Indication: Liver transplant
     Route: 042
     Dates: start: 20210723
  2. ISCALIMAB [Suspect]
     Active Substance: ISCALIMAB
     Route: 042
     Dates: start: 20210805
  3. CELLCEPT [Suspect]
     Active Substance: MYCOPHENOLATE MOFETIL
     Indication: Liver transplant
     Route: 048
     Dates: start: 20210717, end: 20221230
  4. TACROLIMUS [Suspect]
     Active Substance: TACROLIMUS
     Indication: Liver transplant
     Route: 065
     Dates: start: 20210717
  5. VALCYTE [Suspect]
     Active Substance: VALGANCICLOVIR HYDROCHLORIDE
     Indication: Cytomegalovirus viraemia
     Route: 065
     Dates: start: 20221114, end: 20230103
  6. MYCOPHENOLATE MOFETIL [Suspect]
     Active Substance: MYCOPHENOLATE MOFETIL
     Indication: Product used for unknown indication
     Route: 065
  7. FERROUS SULFATE [Concomitant]
     Active Substance: FERROUS SULFATE
     Dates: start: 2007
  8. BIOTIN [Concomitant]
     Active Substance: BIOTIN
     Dates: start: 20211021
  9. GABAPENTIN [Concomitant]
     Active Substance: GABAPENTIN
     Dates: start: 2007
  10. OXYCODONE [Concomitant]
     Active Substance: OXYCODONE
     Dates: start: 20220210
  11. LEVOTHYROXINE [Concomitant]
     Active Substance: LEVOTHYROXINE
     Dates: start: 1992
  12. PROZAC [Concomitant]
     Active Substance: FLUOXETINE HYDROCHLORIDE
     Dates: start: 20220201
  13. GUAIFENESIN [Concomitant]
     Active Substance: GUAIFENESIN
     Dates: start: 20220711
  14. TYLENOL [Concomitant]
     Active Substance: ACETAMINOPHEN
     Dates: start: 20220711
  15. DEXTROMETHORPHAN [Concomitant]
     Active Substance: DEXTROMETHORPHAN
     Dates: start: 20220711
  16. TOCOPHEROL [Concomitant]
     Active Substance: TOCOPHEROL
     Dates: start: 20220822
  17. OMEGA 3 [Concomitant]
     Active Substance: CAPSAICIN
     Dates: start: 20220822
  18. BUPROPION [Concomitant]
     Active Substance: BUPROPION
     Dates: start: 20210507
  19. OYSTER SHELL CACIUM WITH VITAMIN D [Concomitant]
     Dates: start: 2021
  20. CYANOCOBALAMIN [Concomitant]
     Active Substance: CYANOCOBALAMIN
     Dates: start: 20221022
  21. MELATONIN [Concomitant]
     Active Substance: MELATONIN
     Dates: start: 2022
  22. PANTOPRAZOLE [Concomitant]
     Active Substance: PANTOPRAZOLE
     Dates: start: 2017
  23. BUSPAR [Concomitant]
     Active Substance: BUSPIRONE HYDROCHLORIDE
  24. LIPITOR [Concomitant]
     Active Substance: ATORVASTATIN CALCIUM
     Dates: start: 2010
  25. CYCLOBENZAPRINE [Concomitant]
     Active Substance: CYCLOBENZAPRINE
     Dates: start: 2012
  26. DOCUSATE SODIUM [Concomitant]
     Active Substance: DOCUSATE SODIUM
     Dates: start: 20210720
  27. PYRIDOXINE [Concomitant]
     Active Substance: PYRIDOXINE
     Dates: start: 20221019

REACTIONS (1)
  - Febrile neutropenia [Recovered/Resolved]

NARRATIVE: CASE EVENT DATE: 20221229
